FAERS Safety Report 8541905-X (Version None)
Quarter: 2012Q3

REPORT INFORMATION
  Report Type: 
  Country: None (occurrence: None)
  Receive Date: 20120726
  Receipt Date: 20110914
  Transmission Date: 20120928
  Serious: No
  Sender: FDA-Public Use
  Company Number: US-ASTRAZENECA-2011SE55198

PATIENT
  Age: 54 Year
  Sex: Male
  Weight: 90.7 kg

DRUGS (6)
  1. SEROQUEL [Suspect]
     Route: 048
     Dates: start: 20090101
  2. PRANADOL [Concomitant]
     Indication: PAIN
  3. METOPROLOL TARTRATE [Concomitant]
     Indication: HYPERTENSION
  4. XANAX [Concomitant]
     Indication: PANIC ATTACK
  5. SEROQUEL [Suspect]
     Indication: BIPOLAR DISORDER
     Dosage: 600-800  MG
     Route: 048
  6. QUANADINE [Concomitant]
     Indication: HYPERTENSION

REACTIONS (4)
  - BLOOD TRIGLYCERIDES ABNORMAL [None]
  - DRUG DOSE OMISSION [None]
  - GAIT DISTURBANCE [None]
  - MUSCULOSKELETAL STIFFNESS [None]
